FAERS Safety Report 17654725 (Version 1)
Quarter: 2020Q2

REPORT INFORMATION
  Report Type: Spontaneous
  Country: US (occurrence: US)
  Receive Date: 20200409
  Receipt Date: 20200409
  Transmission Date: 20200713
  Serious: No
  Sender: FDA-Public Use
  Company Number: None

PATIENT
  Age: 17 Year
  Sex: Male

DRUGS (2)
  1. EVEROLIMUS TAB 5MG [Suspect]
     Active Substance: EVEROLIMUS
     Route: 048
     Dates: start: 201907
  2. NEXAVAR [Concomitant]
     Active Substance: SORAFENIB

REACTIONS (1)
  - Disease progression [None]

NARRATIVE: CASE EVENT DATE: 20200409
